FAERS Safety Report 7791861-7 (Version None)
Quarter: 2011Q4

REPORT INFORMATION
  Report Type: 
  Country: None (occurrence: None)
  Receive Date: 20111003
  Receipt Date: 20110923
  Transmission Date: 20120403
  Serious: Yes (Hospitalization)
  Sender: FDA-Public Use
  Company Number: US-UCBSA-042025

PATIENT
  Age: 36 Year
  Sex: Female
  Weight: 104 kg

DRUGS (4)
  1. VIMPAT [Suspect]
     Route: 048
     Dates: start: 20100201, end: 20100101
  2. KEPPRA [Suspect]
     Indication: CONVULSION
     Route: 048
     Dates: start: 20100215
  3. KEPPRA [Suspect]
     Route: 048
     Dates: start: 20100215, end: 20100215
  4. VIMPAT [Suspect]
     Indication: CONVULSION
     Route: 048
     Dates: start: 20101026

REACTIONS (1)
  - PETIT MAL EPILEPSY [None]
